FAERS Safety Report 5455041-2 (Version None)
Quarter: 2007Q3

REPORT INFORMATION
  Report Type: 
  Country: None (occurrence: None)
  Receive Date: 20070918
  Receipt Date: 20070911
  Transmission Date: 20080115
  Serious: Yes (Other)
  Sender: FDA-Public Use
  Company Number: PHEH2007US12168

PATIENT
  Sex: Female

DRUGS (3)
  1. LOTREL [Suspect]
     Dosage: 5/20 MG, UNK
     Route: 048
  2. BENICAR HCT [Suspect]
     Route: 048
  3. LORAZEPAM [Suspect]

REACTIONS (3)
  - BLOOD PRESSURE INADEQUATELY CONTROLLED [None]
  - CATARACT [None]
  - HEADACHE [None]
